FAERS Safety Report 8487506-3 (Version None)
Quarter: 2012Q3

REPORT INFORMATION
  Report Type: 
  Country: None (occurrence: None)
  Receive Date: 20120705
  Receipt Date: 20120627
  Transmission Date: 20120928
  Serious: Yes (Other)
  Sender: FDA-Public Use
  Company Number: BR-US-EMD SERONO, INC.-7143854

PATIENT
  Sex: Male

DRUGS (5)
  1. ANLOCOR [Concomitant]
     Indication: PRODUCT USED FOR UNKNOWN INDICATION
  2. TORLOS-H (HYDROCHLOROTHIAZIDE WITH LOSARTAN) [Concomitant]
     Indication: PRODUCT USED FOR UNKNOWN INDICATION
  3. REMITEC (RENITEC) [Concomitant]
     Indication: PRODUCT USED FOR UNKNOWN INDICATION
  4. REBIF [Suspect]
     Indication: RELAPSING-REMITTING MULTIPLE SCLEROSIS
     Dates: start: 20100405
  5. FLUOXETINE [Concomitant]
     Indication: PRODUCT USED FOR UNKNOWN INDICATION

REACTIONS (2)
  - URETHRAL INJURY [None]
  - DEVICE OCCLUSION [None]
